FAERS Safety Report 25097144 (Version 1)
Quarter: 2025Q1

REPORT INFORMATION
  Report Type: Report from Study
  Country: SE (occurrence: SE)
  Receive Date: 20250319
  Receipt Date: 20250319
  Transmission Date: 20250409
  Serious: Yes (Hospitalization)
  Sender: ABBVIE
  Company Number: SE-ABBVIE-6184262

PATIENT
  Age: 63 Year
  Sex: Male

DRUGS (1)
  1. FOSCARBIDOPA\FOSLEVODOPA [Suspect]
     Active Substance: FOSCARBIDOPA\FOSLEVODOPA
     Indication: Parkinson^s disease
     Route: 058
     Dates: start: 20250224, end: 20250313

REACTIONS (4)
  - Paralysis [Unknown]
  - Anxiety [Unknown]
  - Fear [Unknown]
  - Stress [Unknown]

NARRATIVE: CASE EVENT DATE: 20250301
